FAERS Safety Report 14814062 (Version 2)
Quarter: 2018Q3

REPORT INFORMATION
  Report Type: Report from Study
  Country: CA (occurrence: CA)
  Receive Date: 20180426
  Receipt Date: 20180918
  Transmission Date: 20181010
  Serious: Yes (Other)
  Sender: FDA-Public Use
  Company Number: CA-ROCHE-2105459

PATIENT
  Age: 77 Year
  Sex: Female

DRUGS (17)
  1. METHYLPREDNISOLONE. [Concomitant]
     Active Substance: METHYLPREDNISOLONE
     Indication: PREMEDICATION
     Dosage: DOSE: 100 UNIT NOT REPORTED
     Route: 042
  2. ATENOLOL. [Concomitant]
     Active Substance: ATENOLOL
  3. LIPITOR [Concomitant]
     Active Substance: ATORVASTATIN CALCIUM
  4. COLCHICINE. [Concomitant]
     Active Substance: COLCHICINE
  5. SYNTHROID [Concomitant]
     Active Substance: LEVOTHYROXINE SODIUM
  6. ACETAMINOPHEN. [Concomitant]
     Active Substance: ACETAMINOPHEN
     Indication: PREMEDICATION
     Dosage: DOSE: 650 UNIT NOT REPORTED
     Route: 048
  7. COUMADIN [Concomitant]
     Active Substance: WARFARIN SODIUM
  8. RITUXAN [Suspect]
     Active Substance: RITUXIMAB
     Indication: RHEUMATOID ARTHRITIS
     Dosage: INFUSION NO. 1
     Route: 042
     Dates: start: 20180404
  9. PREDNISONE. [Concomitant]
     Active Substance: PREDNISONE
     Route: 065
  10. VENTOLIN [Concomitant]
     Active Substance: ALBUTEROL SULFATE
  11. RITUXAN [Suspect]
     Active Substance: RITUXIMAB
     Dosage: INFUSION 2
     Route: 042
     Dates: start: 20180419
  12. DILAUDID [Concomitant]
     Active Substance: HYDROMORPHONE HYDROCHLORIDE
  13. FLOVENT [Concomitant]
     Active Substance: FLUTICASONE PROPIONATE
     Route: 065
  14. DIPHENHYDRAMINE HYDROCHLORIDE. [Concomitant]
     Active Substance: DIPHENHYDRAMINE HYDROCHLORIDE
     Indication: PREMEDICATION
     Dosage: DOSE: 50 UNIT NOT REPORTED
     Route: 048
  15. DEXILANT [Concomitant]
     Active Substance: DEXLANSOPRAZOLE
  16. OXAZEPAM. [Concomitant]
     Active Substance: OXAZEPAM
  17. PROLIA [Concomitant]
     Active Substance: DENOSUMAB
     Route: 065

REACTIONS (8)
  - Palpitations [Recovered/Resolved]
  - Blood pressure systolic increased [Unknown]
  - Blood pressure systolic abnormal [Unknown]
  - Arthralgia [Unknown]
  - Infusion related reaction [Recovered/Resolved]
  - Heart rate increased [Recovered/Resolved]
  - Arthropathy [Unknown]
  - Oxygen saturation decreased [Unknown]

NARRATIVE: CASE EVENT DATE: 20180404
